FAERS Safety Report 24580346 (Version 1)
Quarter: 2024Q4

REPORT INFORMATION
  Report Type: Spontaneous
  Country: CH (occurrence: CH)
  Receive Date: 20241105
  Receipt Date: 20241105
  Transmission Date: 20250114
  Serious: Yes (Death, Other)
  Sender: AMGEN
  Company Number: CH-AMGEN-CHESP2024213831

PATIENT

DRUGS (1)
  1. CARFILZOMIB [Suspect]
     Active Substance: CARFILZOMIB
     Indication: Plasma cell myeloma refractory
     Dosage: UNK
     Route: 065

REACTIONS (24)
  - Adverse event [Fatal]
  - Oedema peripheral [Unknown]
  - Angiopathy [Unknown]
  - Hypertension [Unknown]
  - Hypertensive crisis [Unknown]
  - Thrombocytopenia [Unknown]
  - Anaemia [Unknown]
  - Lymphopenia [Unknown]
  - Neutropenia [Unknown]
  - Proteinuria [Unknown]
  - Acute kidney injury [Unknown]
  - White blood cell count decreased [Unknown]
  - Hyperuricaemia [Unknown]
  - Diverticulitis [Unknown]
  - Plasma cell myeloma refractory [Unknown]
  - Nephropathy toxic [Unknown]
  - Leukopenia [Unknown]
  - Nephrotic syndrome [Unknown]
  - Asthenia [Unknown]
  - Sepsis [Unknown]
  - Abdominal abscess [Unknown]
  - Fatigue [Unknown]
  - Epistaxis [Unknown]
  - Therapy partial responder [Unknown]
